FAERS Safety Report 15115824 (Version 3)
Quarter: 2018Q3

REPORT INFORMATION
  Report Type: Spontaneous
  Country: DE (occurrence: DE)
  Receive Date: 20180706
  Receipt Date: 20180928
  Transmission Date: 20181010
  Serious: Yes (Hospitalization)
  Sender: FDA-Public Use
  Company Number: DE-VERTEX PHARMACEUTICALS-2018-004583

PATIENT
  Age: 26 Year
  Sex: Female
  Weight: 59 kg

DRUGS (8)
  1. KREON [Concomitant]
     Active Substance: PANCRELIPASE
     Indication: CYSTIC FIBROSIS
     Dosage: UNK
     Route: 048
  2. MONTELUKAST [Concomitant]
     Active Substance: MONTELUKAST SODIUM
     Indication: CYSTIC FIBROSIS
     Dosage: 1 DOSAGE FORM (10 MG) EVERY DAY
     Route: 048
  3. UDC [Concomitant]
     Indication: CYSTIC FIBROSIS
     Dosage: 1?0?2 (500 MG EACH)
     Route: 048
  4. PULMOZYME [Concomitant]
     Active Substance: DORNASE ALFA
     Indication: CYSTIC FIBROSIS
     Dosage: 1 DOSAGE FORM EVERY DAY
     Route: 055
  5. ORKAMBI [Suspect]
     Active Substance: IVACAFTOR\LUMACAFTOR
     Indication: CYSTIC FIBROSIS
     Dosage: 4 DOSAGE FORM (200/125 MG) EVERY DAY
     Route: 048
     Dates: start: 20170915, end: 20180531
  6. COLOBREATHE [Concomitant]
     Active Substance: COLISTIMETHATE SODIUM
     Indication: CYSTIC FIBROSIS
     Dosage: 2 DOSAGE FORM EVERY DAY
     Route: 055
  7. TOBI [Concomitant]
     Active Substance: TOBRAMYCIN
     Indication: CYSTIC FIBROSIS
     Dosage: 2 DOSAGE FORM EVERY DAY
     Route: 055
  8. ACC                                /00082801/ [Concomitant]
     Active Substance: ACETYLCYSTEINE
     Indication: CYSTIC FIBROSIS
     Dosage: 1 DOSAGE FORM EVERY DAY
     Route: 048

REACTIONS (3)
  - Oesophageal varices haemorrhage [Unknown]
  - Hepatic cirrhosis [Unknown]
  - Ascites [Unknown]

NARRATIVE: CASE EVENT DATE: 20180522
